FAERS Safety Report 5270468-X (Version None)
Quarter: 2007Q1

REPORT INFORMATION
  Report Type: 
  Country: None (occurrence: None)
  Receive Date: 20070320
  Receipt Date: 20070308
  Transmission Date: 20070707
  Serious: Yes (Death)
  Sender: FDA-Public Use
  Company Number: US-PFIZER INC-2007020125

PATIENT
  Age: 43 Year
  Sex: Male

DRUGS (3)
  1. NEURONTIN [Suspect]
     Indication: PAIN
     Dosage: DAILY DOSE:1200MG
     Dates: start: 20001101, end: 20030101
  2. NAPROXEN [Concomitant]
  3. CYCLOBENZAPRINE HCL [Concomitant]

REACTIONS (2)
  - COMPLETED SUICIDE [None]
  - HAEMORRHAGE [None]
